FAERS Safety Report 16942689 (Version 3)
Quarter: 2019Q4

REPORT INFORMATION
  Report Type: Report from Study
  Country: None (occurrence: DE)
  Receive Date: 20191021
  Receipt Date: 20191115
  Transmission Date: 20200122
  Serious: Yes (Hospitalization, Other)
  Sender: FDA-Public Use
  Company Number: DE-ABBVIE-19P-062-2971719-00

PATIENT
  Age: 45 Year
  Sex: Female
  Weight: 70 kg

DRUGS (2)
  1. DIENOVEL [Concomitant]
     Active Substance: DIENOGEST\ETHINYL ESTRADIOL
     Indication: CONTRACEPTION
     Route: 048
     Dates: start: 19890715, end: 20190915
  2. SKYRIZI [Suspect]
     Active Substance: RISANKIZUMAB-RZAA
     Indication: PSORIASIS
     Route: 058
     Dates: start: 20190729, end: 20190914

REACTIONS (11)
  - Hyperlipidaemia [Unknown]
  - Ejection fraction decreased [Unknown]
  - Arthralgia [Unknown]
  - Dyspnoea exertional [Unknown]
  - Cardiac ventricular thrombosis [Unknown]
  - Acute myocardial infarction [Recovered/Resolved with Sequelae]
  - Cardiovascular disorder [Unknown]
  - Cardiac aneurysm [Unknown]
  - Ventricular fibrillation [Unknown]
  - Cardiac arrest [Recovered/Resolved with Sequelae]
  - Acute coronary syndrome [Unknown]

NARRATIVE: CASE EVENT DATE: 2019
